FAERS Safety Report 22299365 (Version 1)
Quarter: 2023Q2

REPORT INFORMATION
  Report Type: Spontaneous
  Country: US (occurrence: None)
  Receive Date: 20230508
  Receipt Date: 20230508
  Transmission Date: 20230721
  Serious: Yes (Hospitalization)
  Sender: FDA-Public Use
  Company Number: None

PATIENT
  Age: 43 Year
  Sex: Male
  Weight: 85.5 kg

DRUGS (7)
  1. TRAZODONE [Suspect]
     Active Substance: TRAZODONE HYDROCHLORIDE
     Indication: Insomnia
     Dates: start: 20230418, end: 20230421
  2. TRAZODONE [Suspect]
     Active Substance: TRAZODONE HYDROCHLORIDE
     Indication: Dyspepsia
  3. PEPCID [Concomitant]
     Active Substance: FAMOTIDINE
  4. NMN [Concomitant]
     Active Substance: NICOTINAMIDE RIBOTIDE\RESVERATROL
  5. daily multi [Concomitant]
  6. FLUCONAZOLE [Suspect]
     Active Substance: FLUCONAZOLE
     Dates: start: 20230418, end: 20230421
  7. OMEPRAZOLE [Suspect]
     Active Substance: OMEPRAZOLE
     Dates: start: 20230418, end: 20230421

REACTIONS (4)
  - Hyponatraemia [None]
  - Hypokalaemia [None]
  - Hypomagnesaemia [None]
  - Drug interaction [None]

NARRATIVE: CASE EVENT DATE: 20230421
